FAERS Safety Report 8172574-9 (Version None)
Quarter: 2012Q1

REPORT INFORMATION
  Report Type: 
  Country: None (occurrence: None)
  Receive Date: 20120229
  Receipt Date: 20120223
  Transmission Date: 20120608
  Serious: No
  Sender: FDA-Public Use
  Company Number: US-PFIZER INC-2012051439

PATIENT
  Sex: Female
  Weight: 46.259 kg

DRUGS (2)
  1. DEPO-PROVERA [Suspect]
     Indication: CONTRACEPTION
     Dosage: UNK
     Dates: start: 20111024
  2. PREMARIN [Suspect]
     Indication: VAGINAL HAEMORRHAGE
     Dosage: UNK, DAILY
     Dates: start: 20120201, end: 20120201

REACTIONS (1)
  - RASH [None]
